FAERS Safety Report 7430073-3 (Version None)
Quarter: 2011Q2

REPORT INFORMATION
  Report Type: 
  Country: None (occurrence: None)
  Receive Date: 20110421
  Receipt Date: 20100409
  Transmission Date: 20111010
  Serious: No
  Sender: FDA-Public Use
  Company Number: US-ASTRAZENECA-2010SE15969

PATIENT
  Sex: Female

DRUGS (1)
  1. TOPROL-XL [Suspect]
     Route: 048

REACTIONS (6)
  - PLEURAL EFFUSION [None]
  - DYSPNOEA [None]
  - VOMITING [None]
  - MEMORY IMPAIRMENT [None]
  - DIZZINESS [None]
  - MALAISE [None]
